FAERS Safety Report 21883392 (Version 2)
Quarter: 2023Q1

REPORT INFORMATION
  Report Type: Spontaneous
  Country: US (occurrence: US)
  Receive Date: 20230119
  Receipt Date: 20230320
  Transmission Date: 20230417
  Serious: Yes (Disabling)
  Sender: FDA-Public Use
  Company Number: US-CELLTRION INC.-2022US020632

PATIENT

DRUGS (12)
  1. INFLECTRA [Suspect]
     Active Substance: INFLIXIMAB-DYYB
     Indication: Product used for unknown indication
     Dosage: 700MG (WEEK 0,2,6, AND THEN EVERY 8 WEEKS)
     Route: 042
  2. ENDOCET [Concomitant]
     Active Substance: ACETAMINOPHEN\OXYCODONE HYDROCHLORIDE
     Indication: Gout
     Dosage: 1 TABLET TID, DUE 1/12/23 #90, 30 DAYS STARTING 12/08/2022
     Route: 048
     Dates: start: 20221208
  3. POTASSIUM CHLORIDE [Concomitant]
     Active Substance: POTASSIUM CHLORIDE
     Indication: Oedema
     Dosage: 1 PO BID, TAKE 1 PILL WITH EACH TABLET LASIX TABLET FOR NEXT 2 WK, #21, 14 DAYS STARTING 12/08/2022
     Route: 048
     Dates: start: 20221209
  4. ALLOPURINOL [Concomitant]
     Active Substance: ALLOPURINOL
     Dosage: 1 TABLET ULORIC, START THIS, 1 PO QD #90, 90 DAYS STARTING 10/20/2022
     Route: 048
     Dates: start: 20221020
  5. LYRICA [Concomitant]
     Active Substance: PREGABALIN
     Dosage: 1 CAPSULE BID, #60, 30 DAYS STARTING 10/20/2022
     Route: 048
     Dates: start: 20221020
  6. PLAQUENIL [Concomitant]
     Active Substance: HYDROXYCHLOROQUINE SULFATE
     Indication: Gout
     Dosage: 1 TABLET BID, #180, 90 DAYS STARTING 10/20/2022
     Route: 048
     Dates: start: 20221020
  7. METHOTREXATE SODIUM [Concomitant]
     Active Substance: METHOTREXATE SODIUM
     Dosage: 10 TABLET ONCE PER WEEK, #120, 90 DAYS STARTING 10/20/2022
     Route: 048
     Dates: start: 20221020
  8. FOLIC ACID [Concomitant]
     Active Substance: FOLIC ACID
     Dosage: 1 TABLET QD #30 30 DAYS STARTING 10/20/2022
     Route: 048
     Dates: start: 20221020
  9. PREVENAR [Concomitant]
     Active Substance: PNEUMOCOCCAL 7-VALENT CONJUGATE VACCINE (DIPHTHERIA CRM197 PROTEIN)
     Dosage: 0.5ML INTRAMUSCULAR SYRINGE, 0.5MILILITER IM X 1 NOW, 360 DAYS STARTING 04/07/2022
     Route: 030
     Dates: start: 20220407
  10. HUMIRA [Concomitant]
     Active Substance: ADALIMUMAB
     Indication: Rheumatoid arthritis
     Dosage: 0.4 MILLILITER SQ Q 2 WEEKS, 90 DAYS STARTING 02/24/2022
     Route: 058
     Dates: start: 20220224
  11. FLONASE [Concomitant]
     Active Substance: FLUTICASONE PROPIONATE
     Indication: Gout
     Dosage: 50MGC/ACTUATION, 1 SUSPENSION 2 PUFF EACH NOSTRIL QD, 1 INHALER, 30 DAYS STARTING 03/04/2022
     Route: 045
     Dates: start: 20220304
  12. INSULIN ASPART [Concomitant]
     Active Substance: INSULIN ASPART
     Dosage: 100UNIT/ML SOLUTION
     Route: 058

REACTIONS (5)
  - Arthritis [Unknown]
  - Unevaluable event [Unknown]
  - Product availability issue [Unknown]
  - Product name confusion [Unknown]
  - Insurance issue [Unknown]
